FAERS Safety Report 23040607 (Version 2)
Quarter: 2024Q1

REPORT INFORMATION
  Report Type: Other
  Country: US (occurrence: US)
  Receive Date: 20231006
  Receipt Date: 20240228
  Transmission Date: 20240410
  Serious: No
  Sender: FDA-Public Use
  Company Number: US-TRAVERE THERAPEUTICS, INC.-2021RTN00045

PATIENT
  Age: 41 Year
  Sex: Male

DRUGS (3)
  1. CHOLBAM [Suspect]
     Active Substance: CHOLIC ACID
     Indication: Lipidosis
     Dosage: 250 MG, 2X/DAY
     Route: 048
     Dates: start: 20190912
  2. CHOLBAM [Suspect]
     Active Substance: CHOLIC ACID
     Dosage: 250 MG, 2X/DAY
     Route: 048
     Dates: start: 20091216
  3. CHOLBAM [Suspect]
     Active Substance: CHOLIC ACID
     Dosage: 250 MG, 2X/DAY
     Route: 048
     Dates: start: 20091216

REACTIONS (10)
  - Dysphagia [Unknown]
  - Weight decreased [Unknown]
  - Decreased appetite [Unknown]
  - Cough [Unknown]
  - Balance disorder [Unknown]
  - Speech disorder [Unknown]
  - Hypophagia [Unknown]
  - Asthenia [Unknown]
  - Somnolence [Unknown]
  - Mobility decreased [Unknown]
